FAERS Safety Report 5519169-0 (Version None)
Quarter: 2007Q4

REPORT INFORMATION
  Report Type: 
  Country: None (occurrence: None)
  Receive Date: 20071116
  Receipt Date: 20071114
  Transmission Date: 20080405
  Serious: Yes (Other)
  Sender: FDA-Public Use
  Company Number: US-ASTRAZENECA-2007UW24231

PATIENT
  Sex: Male

DRUGS (2)
  1. CRESTOR [Suspect]
     Dates: start: 20040513, end: 20070630
  2. COZAAR [Concomitant]

REACTIONS (2)
  - DIZZINESS [None]
  - NIGHT BLINDNESS [None]
